FAERS Safety Report 8041957 (Version 2)
Quarter: 2013Q2

REPORT INFORMATION
  Report Type: Report from Study
  Country: MX (occurrence: MX)
  Receive Date: 20110718
  Receipt Date: 20130514
  Transmission Date: 20140414
  Serious: Yes (Other)
  Sender: FDA-Public Use
  Company Number: PHHY2010MX69720

PATIENT
  Age: 74 Year
  Sex: Female

DRUGS (4)
  1. CO-DIOVAN [Suspect]
     Indication: HYPERTENSION
     Dosage: 1 DF (160MG VALS/ 25MG HYDR), DAILY
     Route: 048
     Dates: start: 200508
  2. CO-DIOVAN [Suspect]
     Dosage: 0.5 DF (160 MG VALS/ 25 MG HYDR)
     Route: 048
  3. SINGULAIR [Concomitant]
     Indication: ASTHMA
     Dosage: UNK
     Dates: start: 20110702
  4. SERETIDE [Concomitant]
     Indication: ASTHMA
     Dosage: UNK

REACTIONS (5)
  - Cardiac murmur [Not Recovered/Not Resolved]
  - Arrhythmia [Not Recovered/Not Resolved]
  - Wrong technique in drug usage process [Unknown]
  - Blood pressure increased [Not Recovered/Not Resolved]
  - Anxiety [Not Recovered/Not Resolved]
